FAERS Safety Report 8810590 (Version 1)
Quarter: 2012Q4

REPORT INFORMATION
  Report Type: 
  Country: US (occurrence: US)
  Receive Date: 20120927
  Receipt Date: 20120927
  Transmission Date: 20130627
  Serious: No
  Sender: FDA-Public Use
  Company Number: US-BIOGENIDEC-2012BI040318

PATIENT
  Sex: Female

DRUGS (2)
  1. TYSABRI [Suspect]
     Indication: MULTIPLE SCLEROSIS
     Route: 042
     Dates: start: 20120606
  2. PROVIGIL [Concomitant]

REACTIONS (12)
  - Insomnia [Not Recovered/Not Resolved]
  - Fall [Recovered/Resolved]
  - Weight increased [Not Recovered/Not Resolved]
  - Depression [Recovered/Resolved]
  - Pain in extremity [Recovered/Resolved]
  - Abdominal pain upper [Recovered/Resolved]
  - Pruritus genital [Recovered/Resolved]
  - Mobility decreased [Unknown]
  - Neuralgia [Unknown]
  - Central nervous system lesion [Unknown]
  - Anxiety [Unknown]
  - Headache [Not Recovered/Not Resolved]
